FAERS Safety Report 9246125 (Version 2)
Quarter: 2013Q2

REPORT INFORMATION
  Report Type: Report from Study
  Country: US (occurrence: ZA)
  Receive Date: 20130422
  Receipt Date: 20130502
  Transmission Date: 20140414
  Serious: Yes (Other)
  Sender: FDA-Public Use
  Company Number: US-ABBOTT-13P-163-1079014-00

PATIENT
  Age: 16 Year
  Sex: Female

DRUGS (3)
  1. KALETRA [Suspect]
     Indication: ANTIRETROVIRAL THERAPY
     Dates: start: 20090203, end: 20130326
  2. EMTRIVA [Suspect]
     Indication: ANTIRETROVIRAL THERAPY
     Route: 048
     Dates: start: 20020514, end: 20130326
  3. ABACAVIR GENERIC HETERO [Suspect]
     Indication: ANTIRETROVIRAL THERAPY
     Dates: start: 20091008, end: 20130326

REACTIONS (2)
  - Abortion induced [Unknown]
  - Vaginal haemorrhage [Unknown]
